FAERS Safety Report 18529411 (Version 1)
Quarter: 2020Q4

REPORT INFORMATION
  Report Type: Spontaneous
  Country: AU (occurrence: AU)
  Receive Date: 20201120
  Receipt Date: 20201120
  Transmission Date: 20210114
  Serious: Yes (Other)
  Sender: FDA-Public Use
  Company Number: AU-ALLERGAN-2044810US

PATIENT
  Sex: Male

DRUGS (17)
  1. HALDOL DECANOATE [Suspect]
     Active Substance: HALOPERIDOL DECANOATE
     Indication: PRODUCT USED FOR UNKNOWN INDICATION
     Dosage: UNK
     Route: 065
  2. SEROQUEL [Suspect]
     Active Substance: QUETIAPINE FUMARATE
     Indication: PRODUCT USED FOR UNKNOWN INDICATION
     Dosage: UNK
     Route: 065
  3. ZYPREXA [Suspect]
     Active Substance: OLANZAPINE
     Indication: SUBSTANCE USE
     Dosage: 20 MG
     Route: 065
  4. ZYPREXA [Suspect]
     Active Substance: OLANZAPINE
     Indication: ANXIETY
  5. RISPERDAL [Suspect]
     Active Substance: RISPERIDONE
     Indication: PRODUCT USED FOR UNKNOWN INDICATION
     Dosage: UNK
     Route: 065
  6. ASENAPINE MALEATE - BP [Suspect]
     Active Substance: ASENAPINE MALEATE
     Indication: PRODUCT USED FOR UNKNOWN INDICATION
     Dosage: UNK
     Route: 065
  7. ZYPREXA [Suspect]
     Active Substance: OLANZAPINE
     Indication: FEAR
  8. ARIPIPRAZOLE. [Suspect]
     Active Substance: ARIPIPRAZOLE
     Indication: PRODUCT USED FOR UNKNOWN INDICATION
     Dosage: UNK
     Route: 065
  9. LATUDA [Suspect]
     Active Substance: LURASIDONE HYDROCHLORIDE
     Indication: PRODUCT USED FOR UNKNOWN INDICATION
     Dosage: UNK
     Route: 065
  10. ZUCLOPENTHIXOL [Suspect]
     Active Substance: ZUCLOPENTHIXOL
     Dosage: 250 MG
  11. ZUCLOPENTHIXOL [Suspect]
     Active Substance: ZUCLOPENTHIXOL
     Dosage: 350 MG
  12. ZUCLOPENTHIXOL [Suspect]
     Active Substance: ZUCLOPENTHIXOL
     Dosage: 300 MG
  13. ZUCLOPENTHIXOL [Suspect]
     Active Substance: ZUCLOPENTHIXOL
     Dosage: 200 MG
  14. PALIPERIDONE. [Suspect]
     Active Substance: PALIPERIDONE
     Indication: PRODUCT USED FOR UNKNOWN INDICATION
     Dosage: UNK
     Route: 065
  15. ZUCLOPENTHIXOL [Suspect]
     Active Substance: ZUCLOPENTHIXOL
     Indication: PRODUCT USED FOR UNKNOWN INDICATION
     Dosage: 400 MG
     Route: 065
  16. ZYPREXA [Suspect]
     Active Substance: OLANZAPINE
     Indication: TOBACCO USER
     Dosage: 10 MG
     Dates: start: 2002
  17. ZYPREXA [Suspect]
     Active Substance: OLANZAPINE
     Indication: ALCOHOL USE

REACTIONS (20)
  - Blindness [Unknown]
  - Restlessness [Recovered/Resolved]
  - Loss of consciousness [Recovered/Resolved]
  - Withdrawal syndrome [Recovered/Resolved]
  - Suicidal ideation [Unknown]
  - Dizziness [Unknown]
  - Sexual dysfunction [Unknown]
  - Akathisia [Unknown]
  - Alcohol use disorder [Unknown]
  - Chest pain [Unknown]
  - Psychotic disorder [Unknown]
  - Hypertension [Unknown]
  - Anxiety [Unknown]
  - Burning sensation [Unknown]
  - Deafness [Unknown]
  - Malaise [Unknown]
  - Altered state of consciousness [Unknown]
  - Sedation [Recovered/Resolved]
  - Pain [Unknown]
  - Agitation [Unknown]
